FAERS Safety Report 14586805 (Version 1)
Quarter: 2018Q1

REPORT INFORMATION
  Report Type: Spontaneous
  Country: FR (occurrence: FR)
  Receive Date: 20180301
  Receipt Date: 20180301
  Transmission Date: 20180509
  Serious: Yes (Other)
  Sender: FDA-Public Use
  Company Number: FR-AUROBINDO-AUR-APL-2018-010150

PATIENT
  Age: 60 Year
  Sex: Male

DRUGS (33)
  1. AERIUS [Concomitant]
     Active Substance: DESLORATADINE
     Dosage: 5 MILLIGRAM, TWO TIMES A DAY
     Dates: start: 20170829
  2. LOVENOX [Concomitant]
     Active Substance: ENOXAPARIN SODIUM
     Indication: PRODUCT USED FOR UNKNOWN INDICATION
     Dosage: 1 DOSAGE FORM, DAILY
     Dates: start: 20171108, end: 20171120
  3. DUPHALAC [Concomitant]
     Active Substance: LACTULOSE
     Indication: PRODUCT USED FOR UNKNOWN INDICATION
     Dosage: UNK ()
     Dates: start: 20171102
  4. PREVISCAN                          /00261401/ [Concomitant]
     Active Substance: PENTOXIFYLLINE
     Indication: PRODUCT USED FOR UNKNOWN INDICATION
     Dosage: 0.5 DOSAGE FORM (0.5 TABLET, DAILY)
     Dates: start: 20170829
  5. OPTIJECT [Concomitant]
     Active Substance: IOVERSOL
     Indication: SCAN
     Dosage: 1 DF, SINGLE [ONLY ONCE]
     Dates: start: 20171108
  6. OXYCONTIN [Interacting]
     Active Substance: OXYCODONE HYDROCHLORIDE
     Indication: PRODUCT USED FOR UNKNOWN INDICATION
     Dosage: 20 MILLIGRAM [20 MG STRENGTH]
     Route: 065
  7. OXYCONTIN [Interacting]
     Active Substance: OXYCODONE HYDROCHLORIDE
     Dosage: 2 DOSAGE FORM, DAILY [40 MG STRENGTH]
     Route: 065
  8. FUNGIZONE [Concomitant]
     Active Substance: AMPHOTERICIN B
     Indication: PRODUCT USED FOR UNKNOWN INDICATION
     Dosage: 1 DOSAGE FORM (1 DF, DAILY)
     Dates: start: 20171102
  9. METFORMINE [Concomitant]
     Active Substance: METFORMIN HYDROCHLORIDE
     Indication: DIABETES MELLITUS
     Dosage: 1000 MILLIGRAM, TWO TIMES A DAY
     Dates: start: 20170829
  10. TEGRETOL [Concomitant]
     Active Substance: CARBAMAZEPINE
     Indication: PRODUCT USED FOR UNKNOWN INDICATION
     Dosage: 200 MILLIGRAM, TWO TIMES A DAY
     Dates: start: 20170829
  11. PROPRANOLOL [Concomitant]
     Active Substance: PROPRANOLOL HYDROCHLORIDE
     Indication: PRODUCT USED FOR UNKNOWN INDICATION
     Dosage: 40 MILLIGRAM, DAILY
     Dates: start: 20170829
  12. POTASSIUM [Concomitant]
     Active Substance: POTASSIUM
     Indication: PRODUCT USED FOR UNKNOWN INDICATION
     Dosage: UNK, QID (4)
     Dates: start: 20170829
  13. FUROSEMIDE. [Concomitant]
     Active Substance: FUROSEMIDE
     Indication: PRODUCT USED FOR UNKNOWN INDICATION
     Dosage: 60 MILLIGRAM, DAILY
  14. FINASTERIDE. [Concomitant]
     Active Substance: FINASTERIDE
     Indication: PROSTATOMEGALY
     Dosage: 1 DOSAGE FORM, DAILY
     Dates: start: 20170829
  15. MORPHINE [Interacting]
     Active Substance: MORPHINE
     Indication: PRODUCT USED FOR UNKNOWN INDICATION
     Dosage: ()
     Route: 042
  16. IXEL [Concomitant]
     Active Substance: MILNACIPRAN HYDROCHLORIDE
     Indication: DEPRESSION
     Dosage: 50 MG, BID
     Dates: start: 20170829
  17. FLUCONAZOLE. [Suspect]
     Active Substance: FLUCONAZOLE
     Indication: PRODUCT USED FOR UNKNOWN INDICATION
     Dosage: UNK ()
     Route: 065
     Dates: start: 20171102
  18. METEOSPASMIL [Concomitant]
     Indication: PRODUCT USED FOR UNKNOWN INDICATION
     Dosage: UNK (FOR 3 DAYS ())
     Dates: start: 20171102
  19. GABAPENTINE [Concomitant]
     Active Substance: GABAPENTIN
     Indication: PRODUCT USED FOR UNKNOWN INDICATION
     Dosage: 100 MILLIGRAM SX TIMES A DAY ()
     Dates: start: 20170829
  20. OXYCONTIN [Interacting]
     Active Substance: OXYCODONE HYDROCHLORIDE
     Dosage: 640 DOSAGE FORM, DAILY  [80 MG STRENGTH]
     Route: 065
     Dates: start: 2012
  21. CARBOLEVURE                        /00858201/ [Concomitant]
     Indication: PRODUCT USED FOR UNKNOWN INDICATION
     Dosage: FROM 2 TO 3 DAYS ()
     Dates: start: 20171102
  22. FENOFIBRATE. [Concomitant]
     Active Substance: FENOFIBRATE
     Indication: BLOOD CHOLESTEROL
     Dosage: 300 MILLIGRAM, DAILY
     Dates: start: 20170829
  23. TANAKAN [Concomitant]
     Active Substance: GINKGO
     Indication: PRODUCT USED FOR UNKNOWN INDICATION
     Dosage: 3 DOSAGE FORM, DAILY
     Dates: start: 20170829
  24. FORSTEO [Concomitant]
     Active Substance: TERIPARATIDE
     Indication: OSTEOPOROSIS
     Dosage: 1 DOSAGE FORM, MONTHLY
     Dates: start: 201702
  25. SERETIDE [Concomitant]
     Active Substance: FLUTICASONE PROPIONATE\SALMETEROL XINAFOATE
     Indication: ASTHMA
     Dosage: 3 DOSAGE FORM (3 DF, DAILY)
     Dates: start: 20170829
  26. SPIRIVA [Concomitant]
     Active Substance: TIOTROPIUM BROMIDE MONOHYDRATE
     Indication: CHRONIC OBSTRUCTIVE PULMONARY DISEASE
     Dosage: 18 MCG, DAILY
     Dates: start: 20170829
  27. VENTOLINE                          /00139501/ [Concomitant]
     Active Substance: ALBUTEROL
     Indication: PRODUCT USED FOR UNKNOWN INDICATION
     Dosage: UNK ()
     Dates: start: 20171102
  28. INEXIUM                            /01479302/ [Concomitant]
     Active Substance: ESOMEPRAZOLE MAGNESIUM
     Indication: PRODUCT USED FOR UNKNOWN INDICATION
     Dosage: 40 MILLIGRAM, DAILY
     Dates: start: 20170829
  29. ALFUZOSINE L.P. [Concomitant]
     Active Substance: ALFUZOSIN HYDROCHLORIDE
     Indication: PRODUCT USED FOR UNKNOWN INDICATION
     Dosage: 10 MILLIGRAM, DAILY
     Dates: start: 20170829
  30. BIRODOGYL [Concomitant]
     Active Substance: METRONIDAZOLE\SPIRAMYCIN
     Indication: TOOTH ABSCESS
     Dosage: 3 DOSAGE FORM, 3 TIMES A DAY
     Route: 048
     Dates: start: 20171024, end: 20171107
  31. PERMIXON [Concomitant]
     Active Substance: HERBALS\SAW PALMETTO
     Indication: PROSTATOMEGALY
     Dosage: 160 MILLIGRAM, DAILY
     Dates: start: 20170829
  32. DAFLON /00426001/ [Concomitant]
     Active Substance: DIOSMIN
     Indication: PRODUCT USED FOR UNKNOWN INDICATION
     Dosage: 500 MILLIGRAM, 3 TIMES A DAY
     Dates: start: 20170829
  33. CALCIUM [Concomitant]
     Active Substance: CALCIUM
     Indication: PRODUCT USED FOR UNKNOWN INDICATION
     Dosage: 1 DOSAGE FORM, TWO TIMES A DAY
     Dates: start: 20171102

REACTIONS (5)
  - Drug dependence [Not Recovered/Not Resolved]
  - Drug ineffective [Recovered/Resolved]
  - Drug abuse [Unknown]
  - Drug interaction [Unknown]
  - Drug withdrawal syndrome [Unknown]

NARRATIVE: CASE EVENT DATE: 201711
